FAERS Safety Report 16996336 (Version 3)
Quarter: 2019Q4

REPORT INFORMATION
  Report Type: Spontaneous
  Country: US (occurrence: US)
  Receive Date: 20191105
  Receipt Date: 20191219
  Transmission Date: 20200122
  Serious: Yes (Other)
  Sender: FDA-Public Use
  Company Number: US-PFIZER INC-2019473549

PATIENT
  Age: 51 Year
  Sex: Female
  Weight: 87.75 kg

DRUGS (23)
  1. METOPROLOL TARTRATE. [Suspect]
     Active Substance: METOPROLOL TARTRATE
     Dosage: 50 MG, DAILY
     Route: 048
     Dates: start: 20190327
  2. TRADJENTA [Concomitant]
     Active Substance: LINAGLIPTIN
     Dosage: UNK
  3. KORLYM [Suspect]
     Active Substance: MIFEPRISTONE
     Dosage: 300 MG, UNK
     Route: 048
     Dates: start: 20190307, end: 201903
  4. KORLYM [Suspect]
     Active Substance: MIFEPRISTONE
     Dosage: 600 MG, ALTERNATE DAY (600 MG, QOD (ALTERNATING DAYS), ORAL)
     Route: 048
     Dates: start: 20190429, end: 20190602
  5. AMLODIPINE [Concomitant]
     Active Substance: AMLODIPINE BESYLATE
     Dosage: UNK
     Dates: end: 20190306
  6. KORLYM [Suspect]
     Active Substance: MIFEPRISTONE
     Dosage: 600 MG, 1X/DAY
     Dates: start: 20190603, end: 20190902
  7. OMEPRAZOLE. [Suspect]
     Active Substance: OMEPRAZOLE
     Indication: ABDOMINAL DISCOMFORT
     Dosage: UNK
  8. LINZESS [Concomitant]
     Active Substance: LINACLOTIDE
     Dosage: UNK
  9. KORLYM [Suspect]
     Active Substance: MIFEPRISTONE
     Indication: CUSHING^S SYNDROME
     Dosage: 300 MG, 1X/DAY
     Route: 048
     Dates: start: 20190219, end: 20190223
  10. KORLYM [Suspect]
     Active Substance: MIFEPRISTONE
     Dosage: 300 MG, 1X/DAY
     Route: 048
     Dates: start: 201903, end: 20190428
  11. LOSARTAN HYDROCHLOROTHIAZIDE ACTAVIS [Concomitant]
     Active Substance: HYDROCHLOROTHIAZIDE\LOSARTAN POTASSIUM
     Dosage: UNK
  12. ARMOUR THYROID [Concomitant]
     Active Substance: THYROID, PORCINE
     Dosage: UNK
     Dates: start: 20190327
  13. LIPITOR [Suspect]
     Active Substance: ATORVASTATIN CALCIUM
     Dosage: 20 MG, UNK
     Dates: start: 20190327
  14. LIPITOR [Suspect]
     Active Substance: ATORVASTATIN CALCIUM
     Dosage: 40 MG, 1X/DAY
  15. METOPROLOL TARTRATE. [Suspect]
     Active Substance: METOPROLOL TARTRATE
     Indication: HEART RATE INCREASED
     Dosage: 300 MG, 1X/DAY
  16. KORLYM [Suspect]
     Active Substance: MIFEPRISTONE
     Dosage: UNK (1/2 TABLET)
     Route: 048
     Dates: start: 20190224, end: 20190306
  17. KORLYM [Suspect]
     Active Substance: MIFEPRISTONE
     Dosage: 900 MG, 1X/DAY
     Dates: start: 20190903
  18. NORTRIPTYLINE [Suspect]
     Active Substance: NORTRIPTYLINE
     Indication: SLEEP DISORDER
     Dosage: 50 MG, 1X/DAY
  19. ATORVASTATIN [Concomitant]
     Active Substance: ATORVASTATIN
     Dosage: UNK
     Dates: start: 201906
  20. AMLODIPINE [Concomitant]
     Active Substance: AMLODIPINE BESYLATE
     Dosage: UNK
     Dates: start: 20190307
  21. KORLYM [Suspect]
     Active Substance: MIFEPRISTONE
     Dosage: 300 MG, ALTERNATE DAY (300 MG, QOD (ALTERNATING DAYS))
     Route: 048
     Dates: start: 20190429, end: 20190602
  22. FAMOTIDINE. [Concomitant]
     Active Substance: FAMOTIDINE
     Dosage: UNK
  23. ARMOUR THYROID [Concomitant]
     Active Substance: THYROID, PORCINE
     Dosage: UNK
     Dates: start: 201906

REACTIONS (55)
  - Fear [Unknown]
  - Blood pressure fluctuation [Recovering/Resolving]
  - Mood swings [Unknown]
  - Ingrown hair [Unknown]
  - Weight increased [Unknown]
  - Nerve compression [Unknown]
  - Hypoaesthesia [Not Recovered/Not Resolved]
  - Peripheral swelling [Unknown]
  - Dizziness [Recovered/Resolved]
  - Blood thyroid stimulating hormone increased [Unknown]
  - Malaise [Unknown]
  - Alopecia [Unknown]
  - Abdominal pain upper [Recovered/Resolved]
  - Headache [Unknown]
  - Cortisol increased [Unknown]
  - Diarrhoea [Unknown]
  - Incorrect dose administered [Unknown]
  - Heart rate increased [Recovering/Resolving]
  - Feeling cold [Not Recovered/Not Resolved]
  - Dyspnoea [Unknown]
  - Myalgia [Unknown]
  - Fatigue [Unknown]
  - Anxiety [Recovered/Resolved]
  - Constipation [Unknown]
  - Low density lipoprotein increased [Unknown]
  - Nightmare [Unknown]
  - Insomnia [Unknown]
  - Arthralgia [Recovering/Resolving]
  - Pain [Unknown]
  - Oedema peripheral [Recovered/Resolved]
  - Accident [Unknown]
  - Abdominal distension [Unknown]
  - Flatulence [Recovering/Resolving]
  - Fluid retention [Recovered/Resolved]
  - Blood cholesterol increased [Recovering/Resolving]
  - Antibody test abnormal [Unknown]
  - Blood triglycerides increased [Unknown]
  - High density lipoprotein decreased [Unknown]
  - Asthenia [Unknown]
  - Wrong technique in product usage process [Recovering/Resolving]
  - Hypertrichosis [Recovering/Resolving]
  - Dry skin [Unknown]
  - Hepatic function abnormal [Unknown]
  - Gastrooesophageal reflux disease [Unknown]
  - Nervousness [Unknown]
  - Hyperhidrosis [Recovered/Resolved]
  - Skin discolouration [Recovering/Resolving]
  - Neck pain [Not Recovered/Not Resolved]
  - Irritable bowel syndrome [Recovering/Resolving]
  - Nausea [Recovered/Resolved]
  - Blood glucose decreased [Recovering/Resolving]
  - Decreased appetite [Recovering/Resolving]
  - Asthenia [Recovering/Resolving]
  - Arthralgia [Unknown]
  - Thyroxine increased [Unknown]
